FAERS Safety Report 8405756-9 (Version None)
Quarter: 2012Q2

REPORT INFORMATION
  Report Type: 
  Country: None (occurrence: None)
  Receive Date: 20120530
  Receipt Date: 20120530
  Transmission Date: 20120825
  Serious: No
  Sender: FDA-Public Use
  Company Number: None

PATIENT
  Age: 39 Year
  Sex: Female

DRUGS (2)
  1. GEODON [Suspect]
  2. ZIPRASIDONE HCL [Suspect]
     Dosage: 40 MG ONCE HS ORAL PAST 3-4 MO.
     Route: 048

REACTIONS (3)
  - WEIGHT INCREASED [None]
  - INCREASED APPETITE [None]
  - PRODUCT SUBSTITUTION ISSUE [None]
